FAERS Safety Report 17679476 (Version 1)
Quarter: 2020Q2

REPORT INFORMATION
  Report Type: Spontaneous
  Country: IN (occurrence: IN)
  Receive Date: 20200417
  Receipt Date: 20200417
  Transmission Date: 20200714
  Serious: Yes (Death)
  Sender: FDA-Public Use
  Company Number: IN-STRIDES ARCOLAB LIMITED-2020SP004982

PATIENT
  Age: 50 Year
  Sex: Male

DRUGS (1)
  1. TENOFOVIR DISOPROXIL FUMARATE. [Suspect]
     Active Substance: TENOFOVIR DISOPROXIL FUMARATE
     Indication: HEPATITIS B
     Dosage: UNK, DAILY
     Route: 048
     Dates: start: 20170225

REACTIONS (1)
  - Hepatic failure [Fatal]
